FAERS Safety Report 6492080-7 (Version None)
Quarter: 2009Q4

REPORT INFORMATION
  Report Type: 
  Country: None (occurrence: None)
  Receive Date: 20091125
  Receipt Date: 20090616
  Transmission Date: 20100525
  Serious: Yes (Other)
  Sender: FDA-Public Use
  Company Number: 2009BH010108

PATIENT
  Age: 56 Year
  Sex: Male

DRUGS (17)
  1. DIANEAL [Suspect]
     Indication: PERITONEAL DIALYSIS
     Dosage: 11.5 L; EVERY DAY; IP
     Route: 033
     Dates: start: 20071101
  2. ASPIRIN [Concomitant]
  3. DOXAZOSIN [Concomitant]
  4. COREG [Concomitant]
  5. DIAZEPAM [Concomitant]
  6. FISH OIL [Concomitant]
  7. LACTULOSE [Concomitant]
  8. LANTUS [Concomitant]
  9. LEVAQUIN [Concomitant]
  10. MICARDIS [Concomitant]
  11. MIRALAX [Concomitant]
  12. JANUVIA [Concomitant]
  13. TEKTURNA [Concomitant]
  14. PLENDIL [Concomitant]
  15. PROMETHAZINE [Concomitant]
  16. PANTOPRAZOLE [Concomitant]
  17. SEVELAMER [Concomitant]

REACTIONS (1)
  - PERITONITIS [None]
